FAERS Safety Report 9001617 (Version 2)
Quarter: 2013Q1

REPORT INFORMATION
  Report Type: Spontaneous
  Country: US (occurrence: US)
  Receive Date: 20130107
  Receipt Date: 20130111
  Transmission Date: 20140127
  Serious: Yes (Death, Hospitalization)
  Sender: FDA-Public Use
  Company Number: US-GILEAD-2013-0067357

PATIENT
  Sex: Male

DRUGS (1)
  1. LETAIRIS [Suspect]
     Indication: PULMONARY ARTERIAL HYPERTENSION
     Dosage: 10 MG, QD
     Route: 048
     Dates: start: 20120406

REACTIONS (7)
  - Death [Fatal]
  - Asbestosis [Unknown]
  - Unevaluable event [Unknown]
  - Mechanical ventilation [Unknown]
  - Renal disorder [Unknown]
  - Anaemia [Unknown]
  - Unevaluable event [Unknown]
